FAERS Safety Report 6504783-6 (Version None)
Quarter: 2009Q4

REPORT INFORMATION
  Report Type: 
  Country: None (occurrence: None)
  Receive Date: 20091215
  Receipt Date: 20091207
  Transmission Date: 20100525
  Serious: Yes (Hospitalization)
  Sender: FDA-Public Use
  Company Number: 2009011875

PATIENT
  Age: 84 Year
  Sex: Female
  Weight: 58.0604 kg

DRUGS (1)
  1. TREANDA [Suspect]
     Indication: CHRONIC LYMPHOCYTIC LEUKAEMIA
     Dosage: 130 MG, INTRAVENOUS
     Route: 042
     Dates: start: 20090909, end: 20091111

REACTIONS (3)
  - ASTHENIA [None]
  - HAEMOLYTIC ANAEMIA [None]
  - HYPOGLYCAEMIA [None]
